FAERS Safety Report 9642564 (Version 2)
Quarter: 2013Q4

REPORT INFORMATION
  Report Type: Spontaneous
  Country: US (occurrence: US)
  Receive Date: 20131024
  Receipt Date: 20131227
  Transmission Date: 20140711
  Serious: No
  Sender: FDA-Public Use
  Company Number: US-PFIZER INC-2013302693

PATIENT
  Age: 56 Year
  Sex: Female
  Weight: 113 kg

DRUGS (3)
  1. PREMPRO [Suspect]
     Indication: MENOPAUSAL SYMPTOMS
     Dosage: 0.3/1.5MG, DAILY
     Dates: start: 2001
  2. PREMPRO [Suspect]
     Indication: HOT FLUSH
  3. SYNTHROID [Concomitant]
     Indication: HYPOTHYROIDISM
     Dosage: 75 UG, 1X/DAY

REACTIONS (2)
  - Product physical issue [Unknown]
  - Drug ineffective [Unknown]
